FAERS Safety Report 6687329-1 (Version None)
Quarter: 2010Q2

REPORT INFORMATION
  Report Type: 
  Country: None (occurrence: None)
  Receive Date: 20100419
  Receipt Date: 20100406
  Transmission Date: 20101027
  Serious: Yes (Other)
  Sender: FDA-Public Use
  Company Number: CH-AMGEN-US403249

PATIENT
  Age: 53 Year
  Sex: Female
  Weight: 55 kg

DRUGS (4)
  1. ENBREL [Suspect]
     Indication: RHEUMATOID ARTHRITIS
     Route: 058
     Dates: start: 20091223, end: 20100302
  2. ENBREL [Suspect]
     Dates: start: 20100329
  3. ARCOXIA [Concomitant]
     Dosage: 60 MG AT UNKNOWN DATES AND FREQUENCY
     Route: 048
  4. NEXIUM [Concomitant]
     Route: 048

REACTIONS (6)
  - BRONCHOSPASM [None]
  - CHRONIC OBSTRUCTIVE PULMONARY DISEASE [None]
  - NASOPHARYNGITIS [None]
  - PRODUCTIVE COUGH [None]
  - PULMONARY HILAR ENLARGEMENT [None]
  - VIRAL INFECTION [None]
